FAERS Safety Report 7774937-X (Version None)
Quarter: 2011Q3

REPORT INFORMATION
  Report Type: 
  Country: None (occurrence: None)
  Receive Date: 20110921
  Receipt Date: 20110906
  Transmission Date: 20111222
  Serious: Yes (Hospitalization)
  Sender: FDA-Public Use
  Company Number: AUR-APL-2011-04997

PATIENT
  Age: 53 Year
  Sex: Male

DRUGS (2)
  1. ACETAMINOPHEN/HYDROCODONE BITARTRATE [Suspect]
     Dosage: [10057097-DRUG USE FOR UNKNOWN INDICATION]
  2. CARISOPRODOL [Suspect]
     Indication: PRODUCT USED FOR UNKNOWN INDICATION

REACTIONS (11)
  - BELLIGERENCE [None]
  - MIOSIS [None]
  - PERIORBITAL OEDEMA [None]
  - MYOCARDIAL INFARCTION [None]
  - ANAPHYLACTOID REACTION [None]
  - INFUSION RELATED REACTION [None]
  - PRODUCT COMPOUNDING QUALITY ISSUE [None]
  - MENTAL STATUS CHANGES [None]
  - SUICIDE ATTEMPT [None]
  - STUPOR [None]
  - OVERDOSE [None]
